FAERS Safety Report 18817814 (Version 2)
Quarter: 2021Q2

REPORT INFORMATION
  Report Type: Spontaneous
  Country: US (occurrence: US)
  Receive Date: 20210201
  Receipt Date: 20210531
  Transmission Date: 20210717
  Serious: No
  Sender: FDA-Public Use
  Company Number: US-PFIZER INC-2021085873

PATIENT
  Age: 62 Year
  Sex: Female

DRUGS (1)
  1. IBRANCE [Suspect]
     Active Substance: PALBOCICLIB
     Indication: BREAST CANCER FEMALE
     Dosage: 100 MG, CYCLIC (100 MG DAILY FOR 21 DAYS ON, 7 DAYS OFF ON A 28 DAY CYCLE)

REACTIONS (2)
  - Blood count abnormal [Unknown]
  - White blood cell count decreased [Unknown]
